FAERS Safety Report 6722785-1 (Version None)
Quarter: 2010Q2

REPORT INFORMATION
  Report Type: 
  Country: None (occurrence: None)
  Receive Date: 20100512
  Receipt Date: 20100512
  Transmission Date: 20101027
  Serious: Yes (Life-Threatening)
  Sender: FDA-Public Use
  Company Number: None

PATIENT
  Age: 12 Year
  Sex: Male
  Weight: 73.4827 kg

DRUGS (1)
  1. SINGULAIR [Suspect]
     Indication: ASTHMA
     Dosage: 1 CHEWABLE TABLET ONCE A DAY
     Route: 048
     Dates: start: 20080715, end: 20100504

REACTIONS (9)
  - DEPRESSION [None]
  - EMOTIONAL DISORDER [None]
  - FEAR [None]
  - FRUSTRATION [None]
  - IMPATIENCE [None]
  - INSOMNIA [None]
  - PARANOIA [None]
  - PERSONALITY CHANGE [None]
  - SUICIDAL IDEATION [None]
